FAERS Safety Report 17582732 (Version 1)
Quarter: 2020Q1

REPORT INFORMATION
  Report Type: Spontaneous
  Country: US (occurrence: US)
  Receive Date: 20200325
  Receipt Date: 20200325
  Transmission Date: 20200409
  Serious: No
  Sender: FDA-Public Use
  Company Number: US-ASTRAZENECA-2019SF34447

PATIENT
  Age: 26737 Day
  Sex: Female
  Weight: 85.3 kg

DRUGS (13)
  1. ELIQUIS [Concomitant]
     Active Substance: APIXABAN
  2. OMEPRAZOLE. [Suspect]
     Active Substance: OMEPRAZOLE
     Indication: GASTRIC ULCER
     Route: 048
  3. EFFEXOR XR [Concomitant]
     Active Substance: VENLAFAXINE HYDROCHLORIDE
  4. GLIMEPIRIDE. [Concomitant]
     Active Substance: GLIMEPIRIDE
  5. AMIODARONE [Concomitant]
     Active Substance: AMIODARONE
  6. BYDUREON BCISE [Suspect]
     Active Substance: EXENATIDE
     Indication: GLYCOSYLATED HAEMOGLOBIN INCREASED
     Route: 058
     Dates: start: 20190905, end: 20190912
  7. BYDUREON [Suspect]
     Active Substance: EXENATIDE
     Indication: GLYCOSYLATED HAEMOGLOBIN INCREASED
     Route: 058
     Dates: start: 20190919
  8. METOPROLOL. [Suspect]
     Active Substance: METOPROLOL
     Indication: HEART RATE ABNORMAL
     Route: 065
  9. MIRALAX [Concomitant]
     Active Substance: POLYETHYLENE GLYCOL 3350
     Indication: CONSTIPATION
  10. MAGNESIUM SULFATE. [Concomitant]
     Active Substance: MAGNESIUM SULFATE
     Indication: CONSTIPATION
  11. METFORMIN [Concomitant]
     Active Substance: METFORMIN HYDROCHLORIDE
  12. BALSALAZIDE [Concomitant]
     Active Substance: BALSALAZIDE
  13. ONDANSETRON [Concomitant]
     Active Substance: ONDANSETRON
     Indication: NAUSEA

REACTIONS (3)
  - Constipation [Recovered/Resolved]
  - Diarrhoea [Unknown]
  - Abdominal pain [Unknown]

NARRATIVE: CASE EVENT DATE: 20190918
